FAERS Safety Report 16663674 (Version 1)
Quarter: 2019Q3

REPORT INFORMATION
  Report Type: Spontaneous
  Country: CN (occurrence: CN)
  Receive Date: 20190802
  Receipt Date: 20190802
  Transmission Date: 20191004
  Serious: Yes (Life-Threatening)
  Sender: FDA-Public Use
  Company Number: CN-ASTRAZENECA-2019SF09971

PATIENT
  Age: 76 Year
  Sex: Male
  Weight: 50 kg

DRUGS (2)
  1. ACETYLCYSTEINE. [Suspect]
     Active Substance: ACETYLCYSTEINE
     Indication: CHRONIC OBSTRUCTIVE PULMONARY DISEASE
     Route: 055
     Dates: start: 20190716, end: 20190716
  2. BUDESONIDE. [Suspect]
     Active Substance: BUDESONIDE
     Indication: CHRONIC OBSTRUCTIVE PULMONARY DISEASE
     Route: 055
     Dates: start: 20190716, end: 20190716

REACTIONS (13)
  - Dry skin [Unknown]
  - Breath sounds abnormal [Unknown]
  - Wheezing [Unknown]
  - Blood pressure increased [Unknown]
  - Chest discomfort [Unknown]
  - Dyspnoea [Unknown]
  - Respiratory rate increased [Unknown]
  - Hypersensitivity [Recovering/Resolving]
  - Pollakiuria [Unknown]
  - Heart rate increased [Unknown]
  - Peripheral coldness [Unknown]
  - Cyanosis [Unknown]
  - Rales [Unknown]

NARRATIVE: CASE EVENT DATE: 20190716
